FAERS Safety Report 18672257 (Version 1)
Quarter: 2020Q4

REPORT INFORMATION
  Report Type: Spontaneous
  Country: HR (occurrence: HR)
  Receive Date: 20201229
  Receipt Date: 20201229
  Transmission Date: 20210114
  Serious: Yes (Other)
  Sender: FDA-Public Use
  Company Number: HR-ROCHE-2739757

PATIENT
  Age: 22 Year
  Sex: Female

DRUGS (6)
  1. RIVOTRIL [Suspect]
     Active Substance: CLONAZEPAM
     Indication: PRODUCT USED FOR UNKNOWN INDICATION
     Dosage: DATE OF MOST RECENT DOSE OF CLONAZEPAM : 30/NOV/2020
     Route: 048
     Dates: start: 20201130
  2. QUETIAPINE. [Suspect]
     Active Substance: QUETIAPINE
     Indication: PRODUCT USED FOR UNKNOWN INDICATION
     Dosage: DATE OF MOST RECENT DOSE OF QUETIAPINE: 30/NOV/2020
     Route: 048
     Dates: start: 20201130
  3. PRAZINE [PROMAZINE HYDROCHLORIDE] [Suspect]
     Active Substance: PROMAZINE HYDROCHLORIDE
     Indication: PRODUCT USED FOR UNKNOWN INDICATION
     Dosage: DATE OF THE MOST RECENT DOSE OF PROMAZINE HYDROCHLORIDE: 30/NOV/2020
     Route: 048
     Dates: start: 20201130
  4. APAURIN [Suspect]
     Active Substance: DIAZEPAM
     Indication: PRODUCT USED FOR UNKNOWN INDICATION
     Dosage: 20 APAURINA?DATE OF MOST RECENT DOSE OF APAURIN: 30/NOV/2020
     Route: 048
     Dates: start: 20201130
  5. FLURAZEPAM [Suspect]
     Active Substance: FLURAZEPAM HYDROCHLORIDE
     Indication: PRODUCT USED FOR UNKNOWN INDICATION
     Dosage: DATE OF THE MOST RECENT DOSE OF FLURAZEPAM HYDROCHLORIDE: 30/NOV/2020
     Route: 048
     Dates: start: 20201130
  6. DIAZEPAM. [Suspect]
     Active Substance: DIAZEPAM
     Indication: PRODUCT USED FOR UNKNOWN INDICATION
     Dosage: 50 X?DATE OF MOST RECENT DOSE OF DIAZEPAM: 30/NOV/2020.
     Route: 048
     Dates: start: 20201130

REACTIONS (4)
  - Intentional overdose [Unknown]
  - Miosis [Unknown]
  - Suicide attempt [Unknown]
  - Unresponsive to stimuli [Unknown]

NARRATIVE: CASE EVENT DATE: 20201130
